FAERS Safety Report 7942289-8 (Version None)
Quarter: 2011Q4

REPORT INFORMATION
  Report Type: 
  Country: None (occurrence: None)
  Receive Date: 20111128
  Receipt Date: 20111110
  Transmission Date: 20120403
  Serious: No
  Sender: FDA-Public Use
  Company Number: US-ABBOTT-11P-163-0873572-00

PATIENT
  Sex: Male
  Weight: 96.248 kg

DRUGS (3)
  1. ANDROGEL [Suspect]
     Indication: BLOOD TESTOSTERONE DECREASED
     Route: 061
     Dates: end: 20110901
  2. ANDROGEL [Suspect]
     Indication: BLOOD TESTOSTERONE DECREASED
     Route: 061
     Dates: start: 20110901, end: 20111001
  3. ANDROGEL [Suspect]
     Dates: start: 20111001

REACTIONS (3)
  - FATIGUE [None]
  - ASTHENIA [None]
  - BLOOD TESTOSTERONE DECREASED [None]
